FAERS Safety Report 4745503-5 (Version None)
Quarter: 2005Q3

REPORT INFORMATION
  Report Type: 
  Country: None (occurrence: None)
  Receive Date: 20050815
  Receipt Date: 20050303
  Transmission Date: 20060218
  Serious: Yes (Hospitalization)
  Sender: FDA-Public Use
  Company Number: US-MERCK-0503USA00855

PATIENT
  Age: 51 Year
  Sex: Female

DRUGS (1)
  1. VIOXX [Suspect]
     Route: 048

REACTIONS (23)
  - ACUTE CORONARY SYNDROME [None]
  - ADVERSE EVENT [None]
  - ANGINA UNSTABLE [None]
  - BRONCHITIS [None]
  - CEREBRAL ATROPHY [None]
  - CEREBROVASCULAR ACCIDENT [None]
  - CHEST PAIN [None]
  - CHEST WALL PAIN [None]
  - CORONARY ARTERY DISEASE [None]
  - CORONARY ARTERY STENOSIS [None]
  - CORONARY OSTIAL STENOSIS [None]
  - DEHYDRATION [None]
  - DIABETES MELLITUS [None]
  - HYPERTENSION [None]
  - INSOMNIA [None]
  - LACUNAR INFARCTION [None]
  - LEFT VENTRICULAR FAILURE [None]
  - LEUKOENCEPHALOPATHY [None]
  - MYOCARDIAL ISCHAEMIA [None]
  - OEDEMA PERIPHERAL [None]
  - SINUSITIS [None]
  - SYNCOPE [None]
  - URINARY TRACT INFECTION [None]
